FAERS Safety Report 4555215-9 (Version None)
Quarter: 2004Q4

REPORT INFORMATION
  Report Type: 
  Country: None (occurrence: None)
  Receive Date: 20041217
  Receipt Date: 20040826
  Transmission Date: 20050328
  Serious: No
  Sender: FDA-Public Use
  Company Number: 2004-BP-07385BP

PATIENT
  Age: 64 Year
  Sex: Male

DRUGS (9)
  1. SPIRIVA [Suspect]
     Indication: CHRONIC OBSTRUCTIVE AIRWAYS DISEASE
     Dosage: 18 MCG (18 MCG), IH
     Route: 055
     Dates: start: 20040814, end: 20040828
  2. ALBUTEROL [Concomitant]
  3. WARFARIN (WARFARIN) [Concomitant]
  4. MEVACOR [Concomitant]
  5. SOTALOL HCL [Concomitant]
  6. SEREVENT [Concomitant]
  7. QVAR (BECLOMETASONE DIPROPIONATE) [Concomitant]
  8. ASPIRIN [Concomitant]
  9. VITAMIN C (ASCORBIC ACID) [Concomitant]

REACTIONS (1)
  - DYSPNOEA [None]
